FAERS Safety Report 5823888-6 (Version None)
Quarter: 2008Q3

REPORT INFORMATION
  Report Type: 
  Country: None (occurrence: None)
  Receive Date: 20080724
  Receipt Date: 20080715
  Transmission Date: 20090109
  Serious: Yes (Other)
  Sender: FDA-Public Use
  Company Number: 2008009733

PATIENT
  Age: 47 Year
  Sex: Female
  Weight: 77.1115 kg

DRUGS (1)
  1. BENADRYL [Suspect]
     Indication: RASH
     Dosage: QUATER SIZE ONCE, TOPICAL
     Route: 061
     Dates: start: 20080415, end: 20080415

REACTIONS (3)
  - APPLICATION SITE BURN [None]
  - APPLICATION SITE SCAR [None]
  - PHARMACEUTICAL PRODUCT COMPLAINT [None]
